FAERS Safety Report 7358347 (Version 9)
Quarter: 2015Q1

REPORT INFORMATION
  Report Type: Spontaneous
  Country: US (occurrence: US)
  Receive Date: 20100419
  Receipt Date: 20150331
  Transmission Date: 20150721
  Serious: Yes (Hospitalization, Disabling, Other)
  Sender: FDA-Public Use
  Company Number: US-BAYER-201019422NA

PATIENT
  Age: 30 Year
  Sex: Female
  Weight: 61 kg

DRUGS (4)
  1. NEO SYNEPHRIN [Concomitant]
     Indication: CEREBROVASCULAR ACCIDENT
     Dosage: 75 MG, FOR THREE MONTHS
  2. IBUPROFEN. [Concomitant]
     Active Substance: IBUPROFEN
  3. ROSE (PETALS) [Concomitant]
     Dosage: UNK
     Route: 048
     Dates: start: 20080711
  4. YASMIN [Suspect]
     Active Substance: DROSPIRENONE\ETHINYL ESTRADIOL
     Indication: CONTRACEPTION
     Route: 048
     Dates: start: 2001, end: 20080718

REACTIONS (34)
  - Paradoxical embolism [None]
  - Cerebral infarction [Not Recovered/Not Resolved]
  - Cardiac septal defect [None]
  - General physical health deterioration [Not Recovered/Not Resolved]
  - Anger [None]
  - Gait disturbance [Not Recovered/Not Resolved]
  - Monoplegia [Not Recovered/Not Resolved]
  - Crying [None]
  - Chest discomfort [Not Recovered/Not Resolved]
  - Cerebral thrombosis [None]
  - Cerebral haemorrhage [None]
  - Mobility decreased [Not Recovered/Not Resolved]
  - Speech disorder [Not Recovered/Not Resolved]
  - Neck pain [Not Recovered/Not Resolved]
  - Pain in extremity [Not Recovered/Not Resolved]
  - Frustration [None]
  - Cerebrovascular accident [Not Recovered/Not Resolved]
  - Coordination abnormal [Not Recovered/Not Resolved]
  - Activities of daily living impaired [Not Recovered/Not Resolved]
  - Pulmonary embolism [Not Recovered/Not Resolved]
  - Muscular weakness [Not Recovered/Not Resolved]
  - Insomnia [None]
  - Motor dysfunction [Not Recovered/Not Resolved]
  - Hemiplegia [Not Recovered/Not Resolved]
  - Discomfort [Not Recovered/Not Resolved]
  - Cognitive disorder [Not Recovered/Not Resolved]
  - Anhedonia [None]
  - Fatigue [Not Recovered/Not Resolved]
  - Chest pain [Not Recovered/Not Resolved]
  - Mental disorder [None]
  - High risk pregnancy [None]
  - Ischaemic stroke [Not Recovered/Not Resolved]
  - Emotional distress [None]
  - Muscle spasticity [Not Recovered/Not Resolved]

NARRATIVE: CASE EVENT DATE: 20080718
